FAERS Safety Report 16360768 (Version 1)
Quarter: 2019Q2

REPORT INFORMATION
  Report Type: Spontaneous
  Country: US (occurrence: US)
  Receive Date: 20190528
  Receipt Date: 20190528
  Transmission Date: 20190711
  Serious: Yes (Hospitalization, Other)
  Sender: FDA-Public Use
  Company Number: US-AUROBINDO-AUR-APL-2019-029093

PATIENT

DRUGS (4)
  1. DOFETILIDE. [Suspect]
     Active Substance: DOFETILIDE
     Indication: CORONARY ARTERY DISEASE
  2. BUMEX [Concomitant]
     Active Substance: BUMETANIDE
     Indication: CORONARY ARTERY DISEASE
     Dosage: UNK
     Route: 065
  3. DOFETILIDE. [Suspect]
     Active Substance: DOFETILIDE
     Indication: ATRIAL FIBRILLATION
     Dosage: UNK
     Route: 065
  4. BUMEX [Concomitant]
     Active Substance: BUMETANIDE
     Indication: ATRIAL FIBRILLATION

REACTIONS (6)
  - Ventricular tachycardia [Recovered/Resolved]
  - Blood creatinine increased [Unknown]
  - Electrocardiogram ST segment elevation [Unknown]
  - Syncope [Unknown]
  - Hypokalaemia [Unknown]
  - Toxicity to various agents [Unknown]
